FAERS Safety Report 23883312 (Version 1)
Quarter: 2024Q2

REPORT INFORMATION
  Report Type: Spontaneous
  Country: US (occurrence: US)
  Receive Date: 20240522
  Receipt Date: 20240522
  Transmission Date: 20240716
  Serious: Yes (Hospitalization, Other)
  Sender: FDA-Public Use
  Company Number: US-PIRAMAL CRITICAL CARE LIMITED-2024-PPL-000373

PATIENT

DRUGS (2)
  1. SEVOFLURANE [Suspect]
     Active Substance: SEVOFLURANE
     Indication: Anaesthesia
     Dosage: UNK
  2. SUCCINYLCHOLINE                    /00057701/ [Concomitant]
     Indication: Product used for unknown indication
     Dosage: UNK

REACTIONS (6)
  - Hyperhidrosis [Recovered/Resolved]
  - Hyperthermia [Recovered/Resolved]
  - Hyperthermia malignant [Recovered/Resolved]
  - Muscle rigidity [Recovered/Resolved]
  - Hypercapnia [Recovered/Resolved]
  - Hypotension [Recovered/Resolved]
